FAERS Safety Report 6863634-0 (Version None)
Quarter: 2010Q3

REPORT INFORMATION
  Report Type: 
  Country: None (occurrence: None)
  Receive Date: 20100720
  Receipt Date: 20100713
  Transmission Date: 20110219
  Serious: Yes (Other)
  Sender: FDA-Public Use
  Company Number: 2010SP038508

PATIENT

DRUGS (2)
  1. ASMANEX TWISTHALER [Suspect]
     Indication: PRODUCT USED FOR UNKNOWN INDICATION
     Dates: start: 20100330, end: 20100415
  2. VENTOLIN [Concomitant]

REACTIONS (11)
  - CHILLS [None]
  - HALLUCINATION, AUDITORY [None]
  - HYPERTENSION [None]
  - INSOMNIA [None]
  - NAUSEA [None]
  - NIGHT SWEATS [None]
  - PARANOIA [None]
  - THIRST [None]
  - TREMOR [None]
  - VERTIGO [None]
  - WEIGHT DECREASED [None]
